FAERS Safety Report 7985214-6 (Version None)
Quarter: 2011Q4

REPORT INFORMATION
  Report Type: 
  Country: None (occurrence: None)
  Receive Date: 20111216
  Receipt Date: 20100706
  Transmission Date: 20120403
  Serious: Yes (Other)
  Sender: FDA-Public Use
  Company Number: PHHY2010NL44073

PATIENT
  Age: 63 Year
  Sex: Female

DRUGS (3)
  1. SPIRIVA [Concomitant]
  2. FLUTICASONE PROPIONATE/SALMETEROL [Concomitant]
     Dosage: UNK
  3. TOBI [Suspect]
     Indication: BRONCHIECTASIS
     Dosage: UNK
     Dates: end: 20091006

REACTIONS (2)
  - NIGHTMARE [None]
  - LUNG DISORDER [None]
